FAERS Safety Report 9002098 (Version 1)
Quarter: 2013Q1

REPORT INFORMATION
  Report Type: Spontaneous
  Country: US (occurrence: None)
  Receive Date: 20130102
  Receipt Date: 20130102
  Transmission Date: 20140127
  Serious: Yes (Hospitalization)
  Sender: FDA-Public Use
  Company Number: None

PATIENT
  Age: 71 Year
  Sex: Male
  Weight: 64.4 kg

DRUGS (1)
  1. METOPROLOL [Suspect]
     Indication: ATRIAL FIBRILLATION
     Dosage: AM
     Route: 048
     Dates: start: 20111006

REACTIONS (3)
  - Palpitations [None]
  - Tachycardia [None]
  - Atrial fibrillation [None]
